FAERS Safety Report 4555554-1 (Version None)
Quarter: 2005Q1

REPORT INFORMATION
  Report Type: 
  Country: None (occurrence: None)
  Receive Date: 20050118
  Receipt Date: 20050118
  Transmission Date: 20050727
  Serious: Yes (Hospitalization)
  Sender: FDA-Public Use
  Company Number: None

PATIENT
  Age: 61 Year
  Sex: Female
  Weight: 74 kg

DRUGS (6)
  1. PLAVIX [Suspect]
     Indication: CORONARY ARTERY DISEASE
     Dosage: DAILY PO
     Route: 048
     Dates: start: 20041201, end: 20050103
  2. LIPITOR [Suspect]
     Indication: CORONARY ARTERY DISEASE
     Dosage: DAILY PO
     Route: 048
     Dates: start: 20041201, end: 20050103
  3. GLUCOTROL XL [Concomitant]
  4. ASPIRIN [Concomitant]
  5. TOPROL-XL [Concomitant]
  6. LASIX [Concomitant]

REACTIONS (1)
  - NEUTROPENIA [None]
